FAERS Safety Report 9980446 (Version 1)
Quarter: 2014Q1

REPORT INFORMATION
  Report Type: Spontaneous
  Country: IN (occurrence: IN)
  Receive Date: 20140307
  Receipt Date: 20140307
  Transmission Date: 20141002
  Serious: Yes (Hospitalization, Disabling)
  Sender: FDA-Public Use
  Company Number: IN-009507513-1403IND002239

PATIENT
  Age: 62 Year
  Sex: Male

DRUGS (1)
  1. JANUMET [Suspect]
     Indication: DIABETES MELLITUS
     Dosage: UNK, BID
     Route: 048

REACTIONS (4)
  - Anxiety [Unknown]
  - Anxiety [Unknown]
  - Arthralgia [Unknown]
  - Gait disturbance [Unknown]
